FAERS Safety Report 5039987-5 (Version None)
Quarter: 2006Q2

REPORT INFORMATION
  Report Type: 
  Country: None (occurrence: None)
  Receive Date: 20060601
  Receipt Date: 20060105
  Transmission Date: 20061013
  Serious: No
  Sender: FDA-Public Use
  Company Number: 2006PV006660

PATIENT
  Sex: Female

DRUGS (1)
  1. BYETTA [Suspect]
     Indication: DIABETES MELLITUS
     Dosage: 5 MCG; BID, SC
     Route: 058

REACTIONS (2)
  - BLOOD CREATININE INCREASED [None]
  - OEDEMA [None]
